FAERS Safety Report 20878398 (Version 1)
Quarter: 2022Q2

REPORT INFORMATION
  Report Type: Spontaneous
  Country: US (occurrence: US)
  Receive Date: 20220526
  Receipt Date: 20220526
  Transmission Date: 20220721
  Serious: No
  Sender: FDA-Public Use
  Company Number: US-PFIZER INC-202200754697

PATIENT
  Age: 70 Year
  Sex: Male
  Weight: 122.47 kg

DRUGS (3)
  1. DESVENLAFAXINE SUCCINATE [Suspect]
     Active Substance: DESVENLAFAXINE SUCCINATE
     Indication: Major depression
     Dosage: 50 MG, 1X/DAY (ONE TABLET TAKEN IN AM)
     Dates: start: 20211020, end: 20220517
  2. DULOXETINE [Concomitant]
     Active Substance: DULOXETINE
     Indication: Major depression
     Dosage: 60 MG (TOOK TWO TABLETS IN AM AND TWO TABLETS AT NIGHT TIME)
     Dates: start: 20191003, end: 20220517
  3. ADDERALL [Concomitant]
     Active Substance: AMPHETAMINE ASPARTATE\AMPHETAMINE SULFATE\DEXTROAMPHETAMINE SACCHARATE\DEXTROAMPHETAMINE SULFATE
     Dosage: 5 MG, DAILY (TOOK ONE PO EVERY AM)
     Route: 048
     Dates: start: 20211020, end: 20220517

REACTIONS (2)
  - Drug ineffective [Unknown]
  - Drug intolerance [Unknown]
